FAERS Safety Report 5880420-9 (Version None)
Quarter: 2008Q3

REPORT INFORMATION
  Report Type: 
  Country: None (occurrence: None)
  Receive Date: 20080912
  Receipt Date: 20080626
  Transmission Date: 20090109
  Serious: No
  Sender: FDA-Public Use
  Company Number: US-ABBOTT-08P-163-0435432-00

PATIENT
  Sex: Male
  Weight: 81.72 kg

DRUGS (14)
  1. HUMIRA [Suspect]
     Indication: ARTHRITIS REACTIVE
     Route: 058
     Dates: start: 20080101
  2. HUMIRA [Suspect]
     Route: 058
     Dates: start: 20071201, end: 20080101
  3. METHOTREXATE [Concomitant]
     Indication: ARTHRITIS REACTIVE
     Route: 050
     Dates: start: 20060501
  4. CELECOXIB [Concomitant]
     Indication: ARTHRITIS REACTIVE
     Route: 048
     Dates: start: 20060801
  5. MOROXICAN [Concomitant]
     Indication: DRUG USE FOR UNKNOWN INDICATION
     Route: 048
  6. PREGABALIN [Concomitant]
     Indication: DRUG USE FOR UNKNOWN INDICATION
     Route: 048
  7. FOLIC ACID [Concomitant]
     Indication: DRUG USE FOR UNKNOWN INDICATION
     Route: 048
  8. ESOMEPRAZOLE MAGNESIUM [Concomitant]
     Indication: DRUG USE FOR UNKNOWN INDICATION
     Route: 048
  9. DOXYCYCLINE [Concomitant]
     Indication: DRUG USE FOR UNKNOWN INDICATION
     Route: 048
  10. METHOCARBAMOL [Concomitant]
     Indication: DRUG USE FOR UNKNOWN INDICATION
     Route: 048
  11. METHYLIS [Concomitant]
     Indication: DRUG USE FOR UNKNOWN INDICATION
     Route: 048
  12. CHONDROITIN W/GLUCOSAMINE [Concomitant]
     Indication: DRUG USE FOR UNKNOWN INDICATION
     Route: 048
  13. FISH OIL [Concomitant]
     Indication: DRUG USE FOR UNKNOWN INDICATION
     Route: 048
  14. CETERAZINE [Concomitant]
     Indication: DRUG USE FOR UNKNOWN INDICATION
     Route: 048

REACTIONS (11)
  - ARTHRALGIA [None]
  - ARTHRITIS [None]
  - DIZZINESS [None]
  - DRUG EFFECT DECREASED [None]
  - GLOSSITIS [None]
  - OEDEMA PERIPHERAL [None]
  - PAIN IN EXTREMITY [None]
  - SALIVARY GLAND ENLARGEMENT [None]
  - SALIVARY GLAND PAIN [None]
  - STOMATITIS [None]
  - SWOLLEN TONGUE [None]
